FAERS Safety Report 25878978 (Version 1)
Quarter: 2025Q4

REPORT INFORMATION
  Report Type: Spontaneous
  Country: US (occurrence: US)
  Receive Date: 20251003
  Receipt Date: 20251003
  Transmission Date: 20260118
  Serious: Yes (Death, Other)
  Sender: AMGEN
  Company Number: US-AMGEN-USASP2025194469

PATIENT
  Age: 33 Year
  Sex: Female
  Weight: 45 kg

DRUGS (9)
  1. RITUXIMAB [Suspect]
     Active Substance: RITUXIMAB
     Indication: Prophylaxis
     Dosage: UNK, DAYS 7
     Route: 065
  2. BORTEZOMIB [Concomitant]
     Active Substance: BORTEZOMIB
     Dosage: FOUR DOSES
  3. Immunoglobulin [Concomitant]
     Dosage: TWO DOSES
     Route: 040
  4. Immunoglobulin [Concomitant]
     Dosage: UNK UNK, QWK
     Route: 040
  5. TOCILIZUMAB [Concomitant]
     Active Substance: TOCILIZUMAB
     Dosage: SIX DOSES
  6. IMLIFIDASE [Concomitant]
     Active Substance: IMLIFIDASE
     Dosage: 0.25 MILLIGRAM/KILOGRAM, OVER 15 MIN
     Route: 040
  7. MYCOPHENOLIC ACID [Concomitant]
     Active Substance: MYCOPHENOLIC ACID
  8. TACROLIMUS [Concomitant]
     Active Substance: TACROLIMUS
  9. ALEMTUZUMAB [Concomitant]
     Active Substance: ALEMTUZUMAB

REACTIONS (5)
  - Death [Fatal]
  - Embolic stroke [Unknown]
  - Myocardial ischaemia [Unknown]
  - Off label use [Unknown]
  - Hypotension [Unknown]
